FAERS Safety Report 14922092 (Version 2)
Quarter: 2018Q2

REPORT INFORMATION
  Report Type: Report from Study
  Country: DE (occurrence: DE)
  Receive Date: 20180522
  Receipt Date: 20180525
  Transmission Date: 20180711
  Serious: Yes (Hospitalization)
  Sender: FDA-Public Use
  Company Number: DE-ROCHE-2121768

PATIENT
  Age: 48 Year
  Sex: Female
  Weight: 55 kg

DRUGS (2)
  1. DIMETHYLFUMARAAT [Concomitant]
     Route: 065
     Dates: start: 2014, end: 2018
  2. OCRELIZUMAB. [Suspect]
     Active Substance: OCRELIZUMAB
     Indication: RELAPSING MULTIPLE SCLEROSIS
     Dosage: MOST RECENT DOSE PRIOR TO THE EVENT WAS TAKEN ON 04/MAY/2018.
     Route: 042
     Dates: start: 20180419

REACTIONS (1)
  - Hemiparesis [Recovering/Resolving]

NARRATIVE: CASE EVENT DATE: 201805
